APPROVED DRUG PRODUCT: TRIAMCINOLONE ACETONIDE
Active Ingredient: TRIAMCINOLONE ACETONIDE
Strength: 0.025%
Dosage Form/Route: CREAM;TOPICAL
Application: A040038 | Product #001
Applicant: SUN PHARMA CANADA INC
Approved: Oct 26, 1994 | RLD: No | RS: No | Type: DISCN